FAERS Safety Report 21439943 (Version 1)
Quarter: 2022Q4

REPORT INFORMATION
  Report Type: Spontaneous
  Country: US (occurrence: None)
  Receive Date: 20221008
  Receipt Date: 20221008
  Transmission Date: 20230112
  Serious: Yes (Disabling, Other)
  Sender: FDA-Public Use
  Company Number: None

PATIENT
  Age: 37 Year
  Sex: Female

DRUGS (1)
  1. DUPIXENT [Suspect]
     Active Substance: DUPILUMAB
     Indication: Asthma
     Dates: start: 20210801, end: 20220315

REACTIONS (9)
  - Vasculitis [None]
  - Tendon disorder [None]
  - Arthritis [None]
  - Muscular weakness [None]
  - Rash [None]
  - Dyspnoea [None]
  - Insomnia [None]
  - Weight decreased [None]
  - Eye irritation [None]

NARRATIVE: CASE EVENT DATE: 20220327
